FAERS Safety Report 9471718 (Version 1)
Quarter: 2013Q3

REPORT INFORMATION
  Report Type: Spontaneous
  Country: FR (occurrence: None)
  Receive Date: 20130819
  Receipt Date: 20130819
  Transmission Date: 20140515
  Serious: Yes (Life-Threatening)
  Sender: FDA-Public Use
  Company Number: ADR-2013-01383

PATIENT
  Age: 39 Year
  Sex: Male

DRUGS (3)
  1. BACLOFEN [Suspect]
     Indication: ALCOHOLISM
  2. RISPERIDONE [Suspect]
     Indication: BIPOLAR DISORDER
     Dosage: (1, 2, 4 , 6) MG/DAY
  3. LITHIUM [Concomitant]

REACTIONS (1)
  - Blood triglycerides increased [None]
